APPROVED DRUG PRODUCT: MEXATE
Active Ingredient: METHOTREXATE SODIUM
Strength: EQ 100MG BASE/VIAL
Dosage Form/Route: INJECTABLE;INJECTION
Application: A086358 | Product #003
Applicant: BRISTOL LABORATORIES INC DIV BRISTOL MYERS CO
Approved: Approved Prior to Jan 1, 1982 | RLD: Yes | RS: No | Type: DISCN